FAERS Safety Report 25909257 (Version 1)
Quarter: 2025Q4

REPORT INFORMATION
  Report Type: Spontaneous
  Country: EU (occurrence: EU)
  Receive Date: 20251011
  Receipt Date: 20251011
  Transmission Date: 20260118
  Serious: Yes (Life-Threatening, Hospitalization)
  Sender: BOEHRINGER INGELHEIM
  Company Number: None

PATIENT
  Age: 77 Year
  Sex: Female
  Weight: 72 kg

DRUGS (13)
  1. LINAGLIPTIN [Suspect]
     Active Substance: LINAGLIPTIN
     Indication: Product used for unknown indication
     Dosage: 1-0-0
  2. Metagelan 500 mg [Concomitant]
     Indication: Analgesic therapy
     Dates: start: 20250828, end: 20250905
  3. Metamizol 500mg [Concomitant]
     Indication: Analgesic therapy
     Dates: start: 20250828, end: 20250905
  4. Eliquis 5 mg Filmtabletten [Concomitant]
     Indication: Product used for unknown indication
  5. Concor 5 mg - Filmtabletten [Concomitant]
     Indication: Product used for unknown indication
     Dosage: 1-0-0
  6. PANTOPRAZOLE SODIUM [Concomitant]
     Active Substance: PANTOPRAZOLE SODIUM
     Indication: Product used for unknown indication
     Dosage: 1-0-0
  7. Spirono 50 mg [Concomitant]
     Indication: Product used for unknown indication
     Dosage: 1/2-0-0
  8. Furon 20 mg [Concomitant]
     Indication: Product used for unknown indication
     Dosage: 1-0-0
  9. Euthyrox 100 Mikrogramm Tabletten [Concomitant]
     Indication: Product used for unknown indication
     Dosage: 1-0-0
  10. Hydal retard 2 mg Kapseln [Concomitant]
     Indication: Product used for unknown indication
     Dosage: 1-0-0-1
  11. Cal-D-Vita - Kautabletten [Concomitant]
     Indication: Product used for unknown indication
     Dosage: 0-2-0
  12. SEROQUEL [Concomitant]
     Active Substance: QUETIAPINE FUMARATE
     Indication: Product used for unknown indication
     Dosage: 0-0-0-1/2
  13. Molaxole - Pulver zur Herstellung einer L?sung zum Einnehmen [Concomitant]
     Indication: Product used for unknown indication
     Dosage: 1-0-0

REACTIONS (1)
  - Agranulocytosis [Recovered/Resolved]

NARRATIVE: CASE EVENT DATE: 20250905
